FAERS Safety Report 6589869-2 (Version None)
Quarter: 2010Q1

REPORT INFORMATION
  Report Type: 
  Country: None (occurrence: None)
  Receive Date: 20100219
  Receipt Date: 20100212
  Transmission Date: 20100710
  Serious: Yes (Death, Other)
  Sender: FDA-Public Use
  Company Number: GB-CELGENEUS-167-20785-10021397

PATIENT

DRUGS (7)
  1. THALIDOMIDE [Suspect]
     Indication: METASTATIC MALIGNANT MELANOMA
     Route: 048
  2. TEMOZOLOMIDE [Suspect]
     Indication: METASTATIC MALIGNANT MELANOMA
     Route: 048
  3. TEMOZOLOMIDE [Suspect]
     Dosage: 200MG/M2 DAILY FOR 5 DAYS WITH INTERFERON ALFA-2B
     Route: 048
  4. TEMOZOLOMIDE [Suspect]
     Dosage: 150MG/M2 DAILY FOR 5 DAYS WITH THALIDOMIDE
     Route: 048
  5. INTERFERON ALFA-2B [Suspect]
     Indication: METASTATIC MALIGNANT MELANOMA
     Dosage: 5 MIU
     Route: 058
  6. ONDANSETRON [Concomitant]
     Indication: DRUG USE FOR UNKNOWN INDICATION
     Route: 065
  7. METOCLOPRAMIDE HYDROCHLORIDE [Concomitant]
     Indication: DRUG USE FOR UNKNOWN INDICATION
     Route: 065

REACTIONS (20)
  - ALOPECIA [None]
  - ANAEMIA [None]
  - BLOOD ALKALINE PHOSPHATASE ABNORMAL [None]
  - BLOOD BILIRUBIN ABNORMAL [None]
  - BLOOD CREATININE INCREASED [None]
  - CONSTIPATION [None]
  - DISEASE PROGRESSION [None]
  - INFECTION [None]
  - LETHARGY [None]
  - LUNG DISORDER [None]
  - METASTASES TO CENTRAL NERVOUS SYSTEM [None]
  - NAUSEA [None]
  - NEUROPATHY PERIPHERAL [None]
  - NEUTROPENIA [None]
  - PERITONITIS [None]
  - PYREXIA [None]
  - RASH [None]
  - THROMBOCYTOPENIA [None]
  - TRANSAMINASES ABNORMAL [None]
  - VOMITING [None]
